FAERS Safety Report 24668063 (Version 2)
Quarter: 2025Q1

REPORT INFORMATION
  Report Type: Spontaneous
  Country: US (occurrence: US)
  Receive Date: 20241127
  Receipt Date: 20250318
  Transmission Date: 20250408
  Serious: No
  Sender: ELI LILLY AND COMPANY
  Company Number: US-ELI_LILLY_AND_COMPANY-US202411016086

PATIENT
  Age: 60 Year
  Sex: Female

DRUGS (3)
  1. VERZENIO [Suspect]
     Active Substance: ABEMACICLIB
     Indication: Breast cancer female
     Route: 048
  2. VERZENIO [Suspect]
     Active Substance: ABEMACICLIB
     Dosage: 50 MG, BID
     Route: 048
  3. IMODIUM [Suspect]
     Active Substance: LOPERAMIDE HYDROCHLORIDE
     Indication: Diarrhoea
     Route: 065

REACTIONS (15)
  - Implantation complication [Unknown]
  - Blood magnesium decreased [Unknown]
  - Red blood cell count abnormal [Unknown]
  - Dyspnoea exertional [Unknown]
  - Dyspnoea [Unknown]
  - Breast pain [Unknown]
  - Lymph node pain [Unknown]
  - Product dose omission issue [Unknown]
  - Constipation [Unknown]
  - Dehydration [Unknown]
  - Fatigue [Unknown]
  - Anaemia [Unknown]
  - White blood cell count decreased [Unknown]
  - Diarrhoea [Recovering/Resolving]
  - Asthenia [Not Recovered/Not Resolved]
